FAERS Safety Report 25133366 (Version 1)
Quarter: 2025Q1

REPORT INFORMATION
  Report Type: Spontaneous
  Country: GB (occurrence: GB)
  Receive Date: 20250328
  Receipt Date: 20250328
  Transmission Date: 20250409
  Serious: Yes (Disabling, Other)
  Sender: ACCORD
  Company Number: None

PATIENT
  Age: 71 Year
  Sex: Female

DRUGS (2)
  1. AMITRIPTYLINE [Suspect]
     Active Substance: AMITRIPTYLINE
     Indication: Adverse drug reaction
     Dates: start: 20241209
  2. DULOXETINE [Concomitant]
     Active Substance: DULOXETINE
     Indication: Post herpetic neuralgia

REACTIONS (1)
  - Brain fog [Not Recovered/Not Resolved]

NARRATIVE: CASE EVENT DATE: 20250127
